FAERS Safety Report 8116683-9 (Version None)
Quarter: 2012Q1

REPORT INFORMATION
  Report Type: 
  Country: None (occurrence: None)
  Receive Date: 20120206
  Receipt Date: 20120125
  Transmission Date: 20120608
  Serious: Yes (Hospitalization)
  Sender: FDA-Public Use
  Company Number: PHHY2011JP91837

PATIENT
  Sex: Male

DRUGS (15)
  1. SUNITINIB MALATE [Concomitant]
     Indication: METASTATIC RENAL CELL CARCINOMA
     Dosage: 25 MG, UNK
     Route: 048
     Dates: start: 20091029, end: 20110527
  2. UREPEARL [Concomitant]
     Indication: PROPHYLAXIS
  3. AFINITOR [Suspect]
     Dosage: 5 MG, DAILY
     Route: 048
     Dates: start: 20110707, end: 20110720
  4. SORAFENIB TOSILATE [Concomitant]
     Indication: METASTATIC RENAL CELL CARCINOMA
     Dosage: 800 MG, UNK
     Route: 048
     Dates: start: 20090610, end: 20091014
  5. LASIX [Concomitant]
     Dosage: 80 MG, UNK
     Route: 048
  6. INTERFERON ALFA [Concomitant]
     Indication: METASTATIC RENAL CELL CARCINOMA
     Dates: start: 20090210, end: 20090525
  7. LIVALO KOWA [Concomitant]
     Dosage: 1 MG, UNK
     Route: 048
  8. AMARYL [Concomitant]
     Dosage: 0.5 MG, UNK
     Route: 048
  9. SUMIFERON [Concomitant]
     Indication: METASTATIC RENAL CELL CARCINOMA
     Dates: start: 20080305, end: 20080724
  10. AZUNOL [Concomitant]
     Indication: PROPHYLAXIS
  11. AFINITOR [Suspect]
     Indication: METASTATIC RENAL CELL CARCINOMA
     Dosage: 10 MG, DAILY
     Route: 048
     Dates: start: 20110609, end: 20110620
  12. AFINITOR [Suspect]
     Dosage: 5 MG
     Route: 048
     Dates: start: 20110808
  13. ASPIRIN [Concomitant]
     Dosage: 100 MG, UNK
     Route: 048
  14. MICARDIS [Concomitant]
     Dosage: 80 MG, UNK
     Route: 048
  15. ATELEC [Concomitant]
     Dosage: 20 MG, UNK
     Route: 048

REACTIONS (6)
  - PLATELET COUNT DECREASED [None]
  - RED BLOOD CELL COUNT DECREASED [None]
  - BONE MARROW FAILURE [None]
  - HERPES ZOSTER [None]
  - WHITE BLOOD CELL COUNT DECREASED [None]
  - PNEUMONIA BACTERIAL [None]
